FAERS Safety Report 12467195 (Version 2)
Quarter: 2016Q2

REPORT INFORMATION
  Report Type: Spontaneous
  Country: US (occurrence: US)
  Receive Date: 20160615
  Receipt Date: 20160617
  Transmission Date: 20160815
  Serious: Yes (Other)
  Sender: FDA-Public Use
  Company Number: US-009507513-1510USA010639

PATIENT
  Sex: Female

DRUGS (1)
  1. DULERA [Suspect]
     Active Substance: FORMOTEROL FUMARATE DIHYDRATE\MOMETASONE FUROATE
     Indication: PRODUCT USED FOR UNKNOWN INDICATION
     Route: 065

REACTIONS (5)
  - Drug dose omission [Unknown]
  - Pneumonia [Unknown]
  - Device malfunction [Unknown]
  - Inappropriate schedule of drug administration [Unknown]
  - Product use issue [Unknown]

NARRATIVE: CASE EVENT DATE: 2015
